FAERS Safety Report 21588765 (Version 1)
Quarter: 2022Q4

REPORT INFORMATION
  Report Type: Spontaneous
  Country: US (occurrence: None)
  Receive Date: 20221110
  Receipt Date: 20221110
  Transmission Date: 20230112
  Serious: No
  Sender: FDA-Public Use
  Company Number: None

PATIENT
  Age: 76 Year
  Sex: Female
  Weight: 75.98 kg

DRUGS (11)
  1. IBRANCE [Suspect]
     Active Substance: PALBOCICLIB
     Indication: Breast cancer female
     Dosage: OTHER FREQUENCY : 3W,1WOFF;?
     Route: 048
  2. ACTOS [Concomitant]
  3. ASPIRIN EC [Concomitant]
  4. ATORVASTATIN CALCIUM [Concomitant]
  5. CARVEDILOL [Concomitant]
  6. LETROZOLE [Concomitant]
  7. LOMOTIL [Concomitant]
  8. LOPERAMIDE HCI [Concomitant]
  9. MYRBETRIQ [Concomitant]
  10. TRAMADOL HCI [Concomitant]
  11. TRULICITY [Concomitant]

REACTIONS (1)
  - Disease progression [None]
